FAERS Safety Report 10052821 (Version 4)
Quarter: 2014Q2

REPORT INFORMATION
  Report Type: Spontaneous
  Country: US (occurrence: US)
  Receive Date: 20140402
  Receipt Date: 20140619
  Transmission Date: 20141212
  Serious: Yes (Hospitalization)
  Sender: FDA-Public Use
  Company Number: US-BAXTER-2014BAX015532

PATIENT
  Age: 41 Year
  Sex: Female

DRUGS (2)
  1. DIANEAL LOW CALCIUM [Suspect]
     Indication: RENAL FAILURE CHRONIC
     Route: 033
  2. DIANEAL LOW CALCIUM [Suspect]
     Indication: RENAL FAILURE CHRONIC
     Route: 033

REACTIONS (11)
  - Limb injury [Unknown]
  - Fracture [Unknown]
  - Vascular injury [Unknown]
  - Procedural pain [Not Recovered/Not Resolved]
  - Culture stool positive [Unknown]
  - Sepsis [Recovered/Resolved]
  - Renal failure [Unknown]
  - Arthritis infective [Recovered/Resolved]
  - Abdominal distension [Recovering/Resolving]
  - Vomiting [Not Recovered/Not Resolved]
  - Diarrhoea [Not Recovered/Not Resolved]
